FAERS Safety Report 9654590 (Version 1)
Quarter: 2013Q4

REPORT INFORMATION
  Report Type: Spontaneous
  Country: US (occurrence: US)
  Receive Date: 20131029
  Receipt Date: 20131029
  Transmission Date: 20140711
  Serious: No
  Sender: FDA-Public Use
  Company Number: US-BIOGENIDEC-2013BI085188

PATIENT
  Age: 60 Year
  Sex: Female

DRUGS (11)
  1. TECFIDERA [Suspect]
     Indication: MULTIPLE SCLEROSIS
     Route: 048
     Dates: start: 20130823
  2. TECFIDERA [Suspect]
     Indication: MULTIPLE SCLEROSIS
     Route: 048
  3. AMPYRA [Concomitant]
  4. ACTONEL [Concomitant]
  5. BACLOFEN [Concomitant]
  6. CALCIUM [Concomitant]
  7. DETROL [Concomitant]
  8. EVISTA [Concomitant]
  9. KRILL OIL [Concomitant]
  10. RANITIDINE HCL [Concomitant]
  11. VITAMIN D [Concomitant]

REACTIONS (2)
  - Flushing [Not Recovered/Not Resolved]
  - Rash [Recovered/Resolved]
